FAERS Safety Report 9254596 (Version 1)
Quarter: 2013Q2

REPORT INFORMATION
  Report Type: Spontaneous
  Country: US (occurrence: US)
  Receive Date: 20130425
  Receipt Date: 20130425
  Transmission Date: 20140414
  Serious: No
  Sender: FDA-Public Use
  Company Number: US-009507513-1304USA010821

PATIENT
  Age: 19 Year
  Sex: Female
  Weight: 43.84 kg

DRUGS (3)
  1. IMPLANON [Suspect]
     Indication: CONTRACEPTION
     Dosage: 1 DF, 1 ROD UP TO 3 YEARS
     Dates: start: 20121107
  2. CITALOPRAM [Concomitant]
     Dosage: 20 MG, QD EVERY MORNING
     Route: 048
  3. AMITRIPTYLINE HYDROCHLORIDE [Concomitant]
     Dosage: 10 MG, QD AT BED EVERY NIGHT

REACTIONS (5)
  - Metrorrhagia [Unknown]
  - Blood pressure increased [Unknown]
  - Dizziness [Unknown]
  - Implant site pain [Unknown]
  - Implant site pruritus [Unknown]
